FAERS Safety Report 6069559-5 (Version None)
Quarter: 2009Q1

REPORT INFORMATION
  Report Type: 
  Country: None (occurrence: None)
  Receive Date: 20090206
  Receipt Date: 20090205
  Transmission Date: 20090719
  Serious: Yes (Hospitalization)
  Sender: FDA-Public Use
  Company Number: US-PFIZER INC-2005063109

PATIENT
  Sex: Female
  Weight: 63 kg

DRUGS (13)
  1. INHALED HUMAN INSULIN [Suspect]
     Indication: TYPE 1 DIABETES MELLITUS
     Dosage: SLIDING SCALE
     Route: 055
     Dates: start: 20030205, end: 20050126
  2. *INSULIN GLARGINE [Suspect]
     Indication: TYPE 1 DIABETES MELLITUS
     Dosage: 21 IU, HS 1X/DAY
     Route: 058
     Dates: start: 20010901
  3. *INSULIN LISPRO [Suspect]
     Indication: TYPE 1 DIABETES MELLITUS
     Dosage: 6 IU, 3X/DAY
     Route: 058
     Dates: start: 20050126
  4. FLUOXETINE HCL [Concomitant]
     Route: 048
     Dates: start: 19920101
  5. NAPROXEN [Concomitant]
     Route: 048
     Dates: start: 20030201
  6. AZELASTINE HCL [Concomitant]
     Route: 045
     Dates: start: 19990101
  7. IBUPROFEN [Concomitant]
     Route: 048
     Dates: start: 19700101
  8. ACETAMINOPHEN [Concomitant]
     Route: 048
     Dates: start: 19700101
  9. ZICAM, UNSPECIFIED [Concomitant]
     Route: 045
     Dates: start: 20021101
  10. VITAMIN TAB [Concomitant]
     Route: 048
     Dates: start: 19950101
  11. VITAMIN E [Concomitant]
     Route: 048
     Dates: start: 19950101
  12. ECHINACEA [Concomitant]
     Route: 048
     Dates: start: 19950101
  13. NYQUIL [Concomitant]
     Route: 048
     Dates: start: 20030211

REACTIONS (1)
  - UTERINE PROLAPSE [None]
